FAERS Safety Report 15551971 (Version 2)
Quarter: 2018Q4

REPORT INFORMATION
  Report Type: Spontaneous
  Country: BE (occurrence: BE)
  Receive Date: 20181025
  Receipt Date: 20181029
  Transmission Date: 20190205
  Serious: Yes (Hospitalization, Other)
  Sender: FDA-Public Use
  Company Number: PHHY2018BE110958

PATIENT
  Sex: Female

DRUGS (2)
  1. COSENTYX [Suspect]
     Active Substance: SECUKINUMAB
     Indication: ANKYLOSING SPONDYLITIS
     Dosage: 150 MG, QW
     Route: 058
     Dates: start: 201705, end: 201706
  2. COSENTYX [Suspect]
     Active Substance: SECUKINUMAB
     Dosage: 150 MG, QMO
     Route: 058
     Dates: start: 201706, end: 20170803

REACTIONS (13)
  - Hypoacusis [Recovering/Resolving]
  - Staphylococcal infection [Unknown]
  - Lymphadenitis [Recovering/Resolving]
  - Eustachian tube obstruction [Recovering/Resolving]
  - Eye movement disorder [Recovering/Resolving]
  - Rhinitis [Recovering/Resolving]
  - Otitis media staphylococcal [Recovering/Resolving]
  - Facial paresis [Recovering/Resolving]
  - Tympanic membrane disorder [Unknown]
  - Vertigo [Recovering/Resolving]
  - Otitis media chronic [Recovering/Resolving]
  - Ear infection [Unknown]
  - Middle ear inflammation [Unknown]

NARRATIVE: CASE EVENT DATE: 201708
